FAERS Safety Report 7133924-5 (Version None)
Quarter: 2010Q4

REPORT INFORMATION
  Report Type: 
  Country: None (occurrence: None)
  Receive Date: 20101203
  Receipt Date: 20101116
  Transmission Date: 20110411
  Serious: Yes (Hospitalization, Other)
  Sender: FDA-Public Use
  Company Number: US-BAYER-201023275NA

PATIENT

DRUGS (8)
  1. YAZ [Suspect]
     Route: 065
  2. YASMIN [Suspect]
     Route: 048
  3. OCELLA [Suspect]
     Dosage: 1 TABLET/DAY
     Route: 048
     Dates: start: 20090901, end: 20091001
  4. IBUPROFEN [Concomitant]
     Route: 065
  5. TEGRETOL-XR [Concomitant]
     Route: 065
  6. ALBUTEROL [Concomitant]
     Route: 055
  7. SYNTHROID [Concomitant]
     Indication: HYPOTHYROIDISM
     Route: 065
     Dates: start: 20070101
  8. LORAZEPAM [Concomitant]
     Indication: ANXIETY
     Route: 065
     Dates: start: 20070101

REACTIONS (3)
  - MULTIPLE INJURIES [None]
  - PAIN [None]
  - PULMONARY EMBOLISM [None]
